FAERS Safety Report 13842710 (Version 3)
Quarter: 2022Q1

REPORT INFORMATION
  Report Type: Report from Study
  Country: US (occurrence: US)
  Receive Date: 20170808
  Receipt Date: 20220301
  Transmission Date: 20220423
  Serious: Yes (Other)
  Sender: FDA-Public Use
  Company Number: US-TEVA-791717USA

PATIENT
  Age: 62 Year
  Sex: Male

DRUGS (2)
  1. AUSTEDO [Suspect]
     Active Substance: DEUTETRABENAZINE
     Indication: Huntington^s disease
     Dosage: 36 MILLIGRAM DAILY; 18 MG BID
     Route: 065
     Dates: start: 20170718, end: 20170722
  2. ARICEPT [Suspect]
     Active Substance: DONEPEZIL HYDROCHLORIDE
     Route: 065
     Dates: start: 20170716, end: 20170721

REACTIONS (12)
  - Choking [Recovered/Resolved]
  - Tardive dyskinesia [Recovering/Resolving]
  - Chorea [Recovering/Resolving]
  - Mood altered [Recovering/Resolving]
  - Agitation [Recovering/Resolving]
  - Tongue movement disturbance [Recovering/Resolving]
  - Nervousness [Recovering/Resolving]
  - Irritability [Recovering/Resolving]
  - Restlessness [Recovering/Resolving]
  - Wrong dose [Unknown]
  - Thirst [Unknown]
  - Insomnia [Recovering/Resolving]

NARRATIVE: CASE EVENT DATE: 20170701
